FAERS Safety Report 5573343-6 (Version None)
Quarter: 2007Q4

REPORT INFORMATION
  Report Type: 
  Country: None (occurrence: None)
  Receive Date: 20071226
  Receipt Date: 20071219
  Transmission Date: 20080405
  Serious: Yes (Other)
  Sender: FDA-Public Use
  Company Number: PHRM2007FR02868

PATIENT
  Age: 15 Year
  Sex: Male

DRUGS (1)
  1. RITALIN [Suspect]
     Indication: DISTURBANCE IN ATTENTION
     Dosage: 10 MG, BID
     Route: 048
     Dates: start: 20030101

REACTIONS (2)
  - DYSPNOEA [None]
  - WOLFF-PARKINSON-WHITE SYNDROME [None]
